FAERS Safety Report 6248134-3 (Version None)
Quarter: 2009Q2

REPORT INFORMATION
  Report Type: 
  Country: None (occurrence: None)
  Receive Date: 20090624
  Receipt Date: 20090624
  Transmission Date: 20091009
  Serious: Yes (Disabling)
  Sender: FDA-Public Use
  Company Number: None

PATIENT
  Age: 71 Year
  Sex: Female
  Weight: 61.2356 kg

DRUGS (8)
  1. FORTICAL [Suspect]
     Indication: RESORPTION BONE INCREASED
     Dosage: 200 UNITS (1 PUFF) 1 X DAILY ALTERNATE NOSTRILS FALL OF 2007 TO MAY 009
     Dates: start: 20070101, end: 20090501
  2. LEVOTHYROXINE SODIUM [Concomitant]
  3. OMEPRAZOLE [Concomitant]
  4. ISOSORBIDE [Concomitant]
  5. DIOVAN [Concomitant]
  6. DICLOFENAC [Concomitant]
  7. CRESTOR [Concomitant]
  8. ZETIA [Concomitant]

REACTIONS (7)
  - ARTHRALGIA [None]
  - EAR DISCOMFORT [None]
  - EAR PAIN [None]
  - JOINT CREPITATION [None]
  - MUSCULOSKELETAL DISCOMFORT [None]
  - TEMPOROMANDIBULAR JOINT SYNDROME [None]
  - TINNITUS [None]
